FAERS Safety Report 8988326 (Version 1)
Quarter: 2012Q4

REPORT INFORMATION
  Report Type: Spontaneous
  Country: US (occurrence: None)
  Receive Date: 20121218
  Receipt Date: 20121218
  Transmission Date: 20130627
  Serious: Yes (Death)
  Sender: FDA-Public Use
  Company Number: 2012P1066553

PATIENT
  Age: 82 Year
  Sex: Male

DRUGS (5)
  1. INFUMORPH [Suspect]
  2. INFUMORPH [Suspect]
     Dates: end: 20120423
  3. BACLOFEN [Suspect]
  4. CLONIDINE [Suspect]
  5. CLONIDINE [Suspect]

REACTIONS (1)
  - Death [None]
